FAERS Safety Report 8529334-6 (Version None)
Quarter: 2012Q3

REPORT INFORMATION
  Report Type: 
  Country: None (occurrence: None)
  Receive Date: 20120717
  Receipt Date: 20120717
  Transmission Date: 20120928
  Serious: Yes (Hospitalization, Disabling)
  Sender: FDA-Public Use
  Company Number: None

PATIENT
  Age: 56 Year
  Sex: Female
  Weight: 44.9061 kg

DRUGS (1)
  1. MUCINEX DM [Suspect]
     Indication: NASOPHARYNGITIS
     Dosage: TOOK ONE ONCE
     Dates: start: 20110109, end: 20110109

REACTIONS (4)
  - BEDRIDDEN [None]
  - FEELING DRUNK [None]
  - MALAISE [None]
  - OVERDOSE [None]
